FAERS Safety Report 14173301 (Version 15)
Quarter: 2023Q2

REPORT INFORMATION
  Report Type: Report from Study
  Country: US (occurrence: US)
  Receive Date: 20171109
  Receipt Date: 20230410
  Transmission Date: 20230722
  Serious: Yes (Death, Hospitalization, Other)
  Sender: FDA-Public Use
  Company Number: US-ACADIA PHARMACEUTICALS INC.-ACA-2017-005403

PATIENT
  Sex: Female
  Weight: 72 kg

DRUGS (23)
  1. NUPLAZID [Suspect]
     Active Substance: PIMAVANSERIN TARTRATE
     Indication: Parkinson^s disease
     Dosage: 34 MG, QD
     Route: 048
     Dates: start: 20181206, end: 202106
  2. NUPLAZID [Suspect]
     Active Substance: PIMAVANSERIN TARTRATE
     Dosage: 44 MILLIGRAM, QD
     Route: 048
  3. NUPLAZID [Suspect]
     Active Substance: PIMAVANSERIN TARTRATE
     Dosage: 34 MG, QD
     Route: 048
  4. NUPLAZID [Suspect]
     Active Substance: PIMAVANSERIN TARTRATE
     Indication: Parkinson^s disease
     Dosage: 44 MILLIGRAM, QD (34 MG CAPSULE+10 MG TABLET)
     Route: 048
  5. NUPLAZID [Suspect]
     Active Substance: PIMAVANSERIN TARTRATE
     Indication: Parkinson^s disease psychosis
     Dosage: 34 MG, QD
     Route: 048
     Dates: start: 20170815
  6. NUPLAZID [Suspect]
     Active Substance: PIMAVANSERIN TARTRATE
     Indication: Hallucination
     Dosage: 34 MG, QD
     Route: 048
     Dates: start: 20180805
  7. NUPLAZID [Suspect]
     Active Substance: PIMAVANSERIN TARTRATE
     Indication: Delusion
  8. SEROQUEL [Suspect]
     Active Substance: QUETIAPINE FUMARATE
     Dosage: 25 MG, 1/2 TAB IN THE MORNING AND 1/2 TAB IN THE AFTERNOON
     Dates: start: 20170803
  9. PAROXETINE [Concomitant]
     Active Substance: PAROXETINE
     Dosage: 40 MG, QD
  10. CARBIDOPA\LEVODOPA [Concomitant]
     Active Substance: CARBIDOPA\LEVODOPA
     Dosage: 25/100 MG, 4.5/DAY
  11. LORAZEPAM [Concomitant]
     Active Substance: LORAZEPAM
     Dosage: 0.5 MG, PRN
  12. OMEPRAZOLE [Concomitant]
     Active Substance: OMEPRAZOLE
     Dosage: 20 MG, QD
  13. MELATONIN [Concomitant]
     Active Substance: MELATONIN
  14. PAXIL [Concomitant]
     Active Substance: PAROXETINE HYDROCHLORIDE
  15. QUETIAPINE [Concomitant]
     Active Substance: QUETIAPINE
  16. SINEMET [Concomitant]
     Active Substance: CARBIDOPA\LEVODOPA
  17. HYDROCHLOROTHIAZIDE [Concomitant]
     Active Substance: HYDROCHLOROTHIAZIDE
     Dosage: 12.5 MG, UNK
     Dates: start: 20170816
  18. IBUPROFEN [Concomitant]
     Active Substance: IBUPROFEN
  19. LISINOPRIL [Concomitant]
     Active Substance: LISINOPRIL
  20. CIPROFLOXACIN HYDROCHLORIDE [Concomitant]
     Active Substance: CIPROFLOXACIN HYDROCHLORIDE
  21. ESTRADIOL [Concomitant]
     Active Substance: ESTRADIOL
  22. CEFOTAXIME SODIUM [Concomitant]
     Active Substance: CEFOTAXIME SODIUM
  23. CEFPODOXIME PROXETIL [Concomitant]
     Active Substance: CEFPODOXIME PROXETIL

REACTIONS (43)
  - Death [Fatal]
  - Blood pressure decreased [Unknown]
  - Loss of consciousness [Unknown]
  - Unresponsive to stimuli [Unknown]
  - Seizure [Unknown]
  - Blood pressure fluctuation [Unknown]
  - Urinary tract infection [Unknown]
  - Pain in extremity [Unknown]
  - Decubitus ulcer [Not Recovered/Not Resolved]
  - Decreased appetite [Not Recovered/Not Resolved]
  - Balance disorder [Unknown]
  - Blood pressure increased [Unknown]
  - Delusion [Unknown]
  - Blood pressure increased [Unknown]
  - Cognitive disorder [Not Recovered/Not Resolved]
  - Delusion [Unknown]
  - Urinary tract infection [Unknown]
  - Delusion [Unknown]
  - Cerebral disorder [Unknown]
  - Limb discomfort [Unknown]
  - Heart rate increased [Unknown]
  - Eye swelling [Unknown]
  - Pigmentation disorder [Unknown]
  - Pain in extremity [Not Recovered/Not Resolved]
  - Orthostatic hypertension [Not Recovered/Not Resolved]
  - Somnolence [Not Recovered/Not Resolved]
  - Peripheral swelling [Not Recovered/Not Resolved]
  - Gait disturbance [Not Recovered/Not Resolved]
  - Hallucination [Not Recovered/Not Resolved]
  - Confusional state [Unknown]
  - Fall [Unknown]
  - Constipation [Unknown]
  - Hallucination [Unknown]
  - Drug ineffective [Unknown]
  - Hallucination [Not Recovered/Not Resolved]
  - Drug ineffective [Not Recovered/Not Resolved]
  - Therapeutic product effect decreased [Unknown]
  - Hallucination [Unknown]
  - Hallucination [Unknown]
  - Confusional state [Unknown]
  - Nausea [Unknown]
  - Peripheral swelling [Unknown]
  - Prescribed overdose [Unknown]

NARRATIVE: CASE EVENT DATE: 20180101
